FAERS Safety Report 6913359-8 (Version None)
Quarter: 2010Q3

REPORT INFORMATION
  Report Type: 
  Country: None (occurrence: None)
  Receive Date: 20100809
  Receipt Date: 20100729
  Transmission Date: 20110219
  Serious: Yes (Other)
  Sender: FDA-Public Use
  Company Number: US-JNJFOC-20100709121

PATIENT
  Sex: Female

DRUGS (4)
  1. REMICADE [Suspect]
     Indication: PSORIATIC ARTHROPATHY
     Dosage: HAD BEEN RECEIVING REMICADE FOR OVER 5 YEARS, FOR PAST YEAR RECEIVED 10MG/KG Q 4 WEEKS
     Route: 042
     Dates: end: 20100101
  2. REMICADE [Suspect]
     Route: 042
     Dates: end: 20100101
  3. HYPERTENSION MEDICATION [Concomitant]
     Indication: HYPERTENSION
  4. DIABETES MEDICATION [Concomitant]
     Indication: DIABETES MELLITUS

REACTIONS (1)
  - NEOPLASM MALIGNANT [None]
